FAERS Safety Report 5090810-2 (Version None)
Quarter: 2006Q3

REPORT INFORMATION
  Report Type: 
  Country: None (occurrence: None)
  Receive Date: 20060823
  Receipt Date: 20060815
  Transmission Date: 20061208
  Serious: Yes (Hospitalization)
  Sender: FDA-Public Use
  Company Number: BR-2006-023577

PATIENT
  Age: 31 Year
  Sex: Female

DRUGS (1)
  1. MIRENA [Suspect]
     Indication: ENDOMETRIOSIS
     Dosage: 20 UG/DAY, CONT, INTRA-UTERINE
     Route: 015
     Dates: start: 20051222, end: 20060614

REACTIONS (9)
  - ANAEMIA POSTOPERATIVE [None]
  - DRUG INEFFECTIVE [None]
  - GENITAL HAEMORRHAGE [None]
  - HAEMORRHAGIC CYST [None]
  - HYSTERECTOMY [None]
  - OVARIAN CYST [None]
  - OVARIAN CYST RUPTURED [None]
  - POST PROCEDURAL HAEMORRHAGE [None]
  - UTERINE ENLARGEMENT [None]
